FAERS Safety Report 15338805 (Version 1)
Quarter: 2018Q3

REPORT INFORMATION
  Report Type: Spontaneous
  Country: US (occurrence: US)
  Receive Date: 20180831
  Receipt Date: 20180831
  Transmission Date: 20181010
  Serious: Yes (Other)
  Sender: FDA-Public Use
  Company Number: US-009507513-1808USA009879

PATIENT
  Age: 19 Year
  Sex: Female

DRUGS (1)
  1. NEXPLANON [Suspect]
     Active Substance: ETONOGESTREL
     Indication: CONTRACEPTION
     Dosage: SINGLE, ONCE FOR UP TO THREE YEARS
     Route: 059

REACTIONS (4)
  - Abdominal distension [Unknown]
  - Skin striae [Unknown]
  - Menstruation irregular [Unknown]
  - Implant site scar [Unknown]
